FAERS Safety Report 10459211 (Version 1)
Quarter: 2014Q3

REPORT INFORMATION
  Report Type: Spontaneous
  Country: US (occurrence: US)
  Receive Date: 20140917
  Receipt Date: 20140917
  Transmission Date: 20150326
  Serious: No
  Sender: FDA-Public Use
  Company Number: US-009507513-1409USA006732

PATIENT
  Sex: Female

DRUGS (1)
  1. NASONEX [Suspect]
     Active Substance: MOMETASONE FUROATE
     Dosage: 2 SPARYS IN EACH NOSTRIL ONCE DAILY
     Route: 045
     Dates: start: 201303

REACTIONS (2)
  - Product quality issue [Unknown]
  - No adverse event [Unknown]
